FAERS Safety Report 23094664 (Version 1)
Quarter: 2023Q4

REPORT INFORMATION
  Report Type: Spontaneous
  Country: US (occurrence: US)
  Receive Date: 20231023
  Receipt Date: 20231023
  Transmission Date: 20240109
  Serious: Yes (Other)
  Sender: FDA-Public Use
  Company Number: US-BRISTOL-MYERS SQUIBB COMPANY-2023-149998

PATIENT
  Age: 62 Year
  Sex: Male

DRUGS (1)
  1. ELIQUIS [Suspect]
     Active Substance: APIXABAN
     Indication: Product used for unknown indication
     Dosage: DOSE: 5MG; FREQ: TAKE ONE TABLET BY MOUTH TWICE DAILY
     Route: 048

REACTIONS (4)
  - Back disorder [Unknown]
  - Gait disturbance [Unknown]
  - Neoplasm malignant [Unknown]
  - Treatment noncompliance [Unknown]
